FAERS Safety Report 4351515-6 (Version None)
Quarter: 2004Q2

REPORT INFORMATION
  Report Type: 
  Country: None (occurrence: None)
  Receive Date: 20040430
  Receipt Date: 20040430
  Transmission Date: 20050107
  Serious: Yes (Death)
  Sender: FDA-Public Use
  Company Number: None

PATIENT
  Sex: Female
  Weight: 11 kg

DRUGS (3)
  1. METHOTREXATE [Suspect]
     Indication: ACUTE LYMPHOCYTIC LEUKAEMIA
     Dosage: 10MG ONCE INTRATHECAL
     Route: 037
     Dates: start: 20040314, end: 20040314
  2. CYTARABINE [Suspect]
     Indication: ACUTE LYMPHOCYTIC LEUKAEMIA
     Dosage: 40 MG DAILY X 3 DAYS INTRAVENOUS
     Route: 042
     Dates: start: 20040314, end: 20040316
  3. . [Concomitant]

REACTIONS (11)
  - BRAIN HERNIATION [None]
  - BRAIN OEDEMA [None]
  - CEREBRAL INFARCTION [None]
  - CSF MYELIN BASIC PROTEIN INCREASED [None]
  - CSF PROTEIN INCREASED [None]
  - CSF WHITE BLOOD CELL COUNT INCREASED [None]
  - DEPRESSED LEVEL OF CONSCIOUSNESS [None]
  - PUPIL FIXED [None]
  - RED BLOOD CELLS CSF POSITIVE [None]
  - STATUS EPILEPTICUS [None]
  - VOMITING [None]
